FAERS Safety Report 18568438 (Version 1)
Quarter: 2020Q4

REPORT INFORMATION
  Report Type: Spontaneous
  Country: FR (occurrence: FR)
  Receive Date: 20201202
  Receipt Date: 20201202
  Transmission Date: 20210114
  Serious: Yes (Hospitalization)
  Sender: FDA-Public Use
  Company Number: FR-ACCORD-209690

PATIENT
  Age: 50 Year
  Sex: Female

DRUGS (1)
  1. CAPECITABINE ACCORD [Suspect]
     Active Substance: CAPECITABINE
     Indication: BREAST CANCER
     Route: 048
     Dates: start: 20200803

REACTIONS (3)
  - Encephalopathy [Recovering/Resolving]
  - Reversible splenial lesion syndrome [Recovering/Resolving]
  - Cerebellar ataxia [Recovering/Resolving]

NARRATIVE: CASE EVENT DATE: 20200805
